FAERS Safety Report 10706321 (Version 3)
Quarter: 2017Q2

REPORT INFORMATION
  Report Type: Spontaneous
  Country: US (occurrence: US)
  Receive Date: 20150113
  Receipt Date: 20170612
  Transmission Date: 20170829
  Serious: No
  Sender: FDA-Public Use
  Company Number: US-ASTRAZENECA-2014SE83571

PATIENT
  Age: 892 Month
  Sex: Female

DRUGS (5)
  1. PROCARDIA [Concomitant]
     Active Substance: NIFEDIPINE
     Route: 048
  2. PULMICORT FLEXHALER [Suspect]
     Active Substance: BUDESONIDE
     Dosage: 360 MCG, 2 PUFFS, TWO TIMES A DAY
     Route: 055
     Dates: start: 2010
  3. SYMBICORT [Suspect]
     Active Substance: BUDESONIDE\FORMOTEROL FUMARATE DIHYDRATE
     Dosage: 160/4.5 MCG, TWO INHALATIONS TWICE A DAY
     Route: 055
  4. PROAIR INHALER [Concomitant]
     Active Substance: ALBUTEROL SULFATE
     Route: 055
  5. LIPITOR [Concomitant]
     Active Substance: ATORVASTATIN CALCIUM
     Route: 048

REACTIONS (4)
  - Drug ineffective [Unknown]
  - Dyspnoea [Unknown]
  - Drug dose omission [Unknown]
  - Device malfunction [Unknown]

NARRATIVE: CASE EVENT DATE: 201410
